FAERS Safety Report 17362042 (Version 15)
Quarter: 2022Q3

REPORT INFORMATION
  Report Type: Spontaneous
  Country: US (occurrence: US)
  Receive Date: 20200203
  Receipt Date: 20220718
  Transmission Date: 20221027
  Serious: Yes (Hospitalization, Disabling, Other)
  Sender: FDA-Public Use
  Company Number: US-PFIZER INC-2020044804

PATIENT
  Age: 71 Year
  Sex: Female
  Weight: 86.18 kg

DRUGS (3)
  1. PRISTIQ EXTENDED-RELEASE [Suspect]
     Active Substance: DESVENLAFAXINE SUCCINATE
     Indication: Depression
     Dosage: 50 MG, DAILY
     Route: 048
  2. PRISTIQ EXTENDED-RELEASE [Suspect]
     Active Substance: DESVENLAFAXINE SUCCINATE
     Indication: Anxiety
     Dosage: 100 MG, DAILY
     Route: 048
  3. PRISTIQ EXTENDED-RELEASE [Suspect]
     Active Substance: DESVENLAFAXINE SUCCINATE
     Indication: Hyperlipidaemia

REACTIONS (11)
  - Malaise [Unknown]
  - Bladder cancer stage IV [Unknown]
  - Urinary tract infection [Unknown]
  - Blood urine present [Unknown]
  - Mobility decreased [Unknown]
  - Limb operation [Unknown]
  - Intercepted product selection error [Unknown]
  - Illness [Unknown]
  - Visual impairment [Unknown]
  - Hypoacusis [Unknown]
  - Confusional state [Unknown]

NARRATIVE: CASE EVENT DATE: 20190501
